FAERS Safety Report 22170704 (Version 4)
Quarter: 2023Q2

REPORT INFORMATION
  Report Type: Report from Study
  Country: US (occurrence: US)
  Receive Date: 20230404
  Receipt Date: 20230629
  Transmission Date: 20230722
  Serious: Yes (Other)
  Sender: FDA-Public Use
  Company Number: US-TAKEDA-2023TUS034139

PATIENT
  Sex: Female

DRUGS (2)
  1. HUMAN IMMUNOGLOBULIN G [Suspect]
     Active Substance: HUMAN IMMUNOGLOBULIN G
     Indication: Hypogammaglobulinaemia
     Dosage: UNK
     Route: 065
  2. HUMAN IMMUNOGLOBULIN G [Suspect]
     Active Substance: HUMAN IMMUNOGLOBULIN G
     Indication: Primary immunodeficiency syndrome

REACTIONS (16)
  - Renal failure [Unknown]
  - Pneumonia [Unknown]
  - Arthritis infective [Unknown]
  - Urinary tract infection [Unknown]
  - Infection [Unknown]
  - Generalised oedema [Unknown]
  - Sinus disorder [Unknown]
  - Obstruction [Unknown]
  - Sinusitis [Unknown]
  - Malaise [Unknown]
  - Pyrexia [Unknown]
  - Implant site infection [Unknown]
  - Peripheral swelling [Unknown]
  - Vitamin D deficiency [Unknown]
  - Respiratory tract congestion [Unknown]
  - Erythema [Unknown]
